FAERS Safety Report 8616660-5 (Version None)
Quarter: 2012Q3

REPORT INFORMATION
  Report Type: 
  Country: None (occurrence: None)
  Receive Date: 20120823
  Receipt Date: 20120820
  Transmission Date: 20120928
  Serious: Yes (Death, Hospitalization, Other)
  Sender: FDA-Public Use
  Company Number: US-ELI_LILLY_AND_COMPANY-US200910005599

PATIENT
  Sex: Male

DRUGS (15)
  1. BYETTA [Suspect]
     Dosage: UNK, UNKNOWN
     Route: 058
     Dates: start: 20060110
  2. LISINOPRIL [Concomitant]
  3. LOFIBRA [Concomitant]
  4. FLOMAX [Concomitant]
  5. TOPROL-XL [Concomitant]
  6. HUMALOG [Concomitant]
  7. VYTORIN [Concomitant]
     Dosage: UNK, UNKNOWN
  8. CILOSTAZOL [Concomitant]
  9. ACTOS [Concomitant]
  10. LATANOPROST [Concomitant]
  11. LANTUS [Concomitant]
  12. AVODART [Concomitant]
  13. CREON [Concomitant]
  14. BYETTA [Suspect]
     Dosage: 10 UG, BID
     Route: 058
     Dates: end: 20070216
  15. PREVACID [Concomitant]

REACTIONS (4)
  - HOSPITALISATION [None]
  - PANCREATITIS ACUTE [None]
  - OFF LABEL USE [None]
  - PANCREATIC CARCINOMA [None]
